FAERS Safety Report 10723136 (Version 2)
Quarter: 2015Q1

REPORT INFORMATION
  Report Type: Spontaneous
  Country: US (occurrence: US)
  Receive Date: 20150120
  Receipt Date: 20150123
  Transmission Date: 20150721
  Serious: Yes (Other)
  Sender: FDA-Public Use
  Company Number: US-SA-2015SA004548

PATIENT
  Age: 59 Year
  Sex: Female

DRUGS (5)
  1. NOVOLOG [Concomitant]
     Active Substance: INSULIN ASPART
  2. LANTUS SOLOSTAR [Suspect]
     Active Substance: INSULIN GLARGINE
     Indication: DIABETES MELLITUS
     Dosage: 36, 40 UNITS MORNING, NIGHT
     Route: 065
  3. SOLOSTAR [Concomitant]
     Active Substance: DEVICE
  4. LANTUS SOLOSTAR [Suspect]
     Active Substance: INSULIN GLARGINE
     Indication: DIABETES MELLITUS
     Dosage: 36, 40 UNITS MORNING, NIGHT
     Route: 065
     Dates: start: 2012
  5. SOLOSTAR [Concomitant]
     Active Substance: DEVICE
     Dates: start: 2012

REACTIONS (4)
  - Bronchitis [Unknown]
  - Asthma [Unknown]
  - Drug administration error [Unknown]
  - Drug dose omission [Unknown]

NARRATIVE: CASE EVENT DATE: 201406
